FAERS Safety Report 7301804-8 (Version None)
Quarter: 2011Q1

REPORT INFORMATION
  Report Type: 
  Country: None (occurrence: None)
  Receive Date: 20110208
  Receipt Date: 20110131
  Transmission Date: 20110831
  Serious: Yes (Death)
  Sender: FDA-Public Use
  Company Number: 2007JP001139

PATIENT
  Age: 6 Month
  Sex: Female

DRUGS (3)
  1. PROGRAF [Suspect]
     Indication: GRAFT VERSUS HOST DISEASE
  2. PROGRAF [Suspect]
     Indication: PROPHYLAXIS
  3. METHOTREXATE [Concomitant]

REACTIONS (1)
  - PNEUMONIA CYTOMEGALOVIRAL [None]
